FAERS Safety Report 18484995 (Version 3)
Quarter: 2021Q1

REPORT INFORMATION
  Report Type: Spontaneous
  Country: CN (occurrence: CN)
  Receive Date: 20201110
  Receipt Date: 20210126
  Transmission Date: 20210419
  Serious: Yes (Other)
  Sender: FDA-Public Use
  Company Number: CN-BAUSCH-BL-2020-032315

PATIENT
  Age: 64 Year
  Sex: Male

DRUGS (6)
  1. METHAZOLAMIDE. [Suspect]
     Active Substance: METHAZOLAMIDE
     Indication: GLAUCOMA
     Route: 048
     Dates: start: 20201018
  2. POTASSIUM CHLORIDE. [Suspect]
     Active Substance: POTASSIUM CHLORIDE
     Indication: ANGLE CLOSURE GLAUCOMA
     Route: 048
     Dates: start: 20201018
  3. ZHENRUI [Suspect]
     Active Substance: PILOCARPINE NITRATE
     Dosage: OCULAR (5 MIN/TIME, 3 TIMES) REDUCED DOSE
     Route: 047
     Dates: start: 202010
  4. MANNITOL. [Suspect]
     Active Substance: MANNITOL
     Indication: ANGLE CLOSURE GLAUCOMA
     Dosage: INTRAVENOUS DROPS (IVGTT)
     Route: 042
     Dates: start: 20201018
  5. BRIMONIDINE TARTRATE OPHTHALMIC SOLUTION 0.2% [Suspect]
     Active Substance: BRIMONIDINE TARTRATE
     Indication: ANGLE CLOSURE GLAUCOMA
     Dosage: LEFT EYE
     Route: 065
     Dates: start: 20201018
  6. ZHENRUI [Suspect]
     Active Substance: PILOCARPINE NITRATE
     Indication: ANGLE CLOSURE GLAUCOMA
     Dosage: OCULAR (5 MIN/TIME, 6 TIMES)
     Route: 047
     Dates: start: 20201018, end: 20201018

REACTIONS (4)
  - Headache [Recovered/Resolved]
  - Palpitations [Recovered/Resolved]
  - Flushing [Recovered/Resolved]
  - Amaurosis [Recovered/Resolved]

NARRATIVE: CASE EVENT DATE: 20201018
